FAERS Safety Report 10196831 (Version 1)
Quarter: 2014Q2

REPORT INFORMATION
  Report Type: Spontaneous
  Country: FR (occurrence: FR)
  Receive Date: 20140527
  Receipt Date: 20140527
  Transmission Date: 20141212
  Serious: Yes (Hospitalization)
  Sender: FDA-Public Use
  Company Number: FR-ASTRAZENECA-2014SE35693

PATIENT
  Age: 64 Year
  Sex: Male

DRUGS (9)
  1. INEXIUM [Suspect]
     Route: 048
     Dates: start: 20140422
  2. KEPPRA [Suspect]
     Route: 065
     Dates: start: 20140409
  3. MEDROL [Suspect]
     Dosage: 100 MG DAILY THE FIRST 2 DAYS AND 50 MG DAILY THE FOLLOWING DAYS
     Route: 065
     Dates: start: 20140420
  4. TEMERIT [Concomitant]
  5. EXFORGE [Concomitant]
  6. ALDACTAZINE [Concomitant]
  7. CRESTOR [Concomitant]
  8. KARDEGIC [Concomitant]
  9. AUGMENTIN [Concomitant]
     Dates: start: 20140409, end: 20140417

REACTIONS (3)
  - Hepatocellular injury [Unknown]
  - Jaundice [Unknown]
  - Cholestasis [Unknown]
